FAERS Safety Report 7355357-9 (Version None)
Quarter: 2011Q1

REPORT INFORMATION
  Report Type: 
  Country: None (occurrence: None)
  Receive Date: 20110316
  Receipt Date: 20110309
  Transmission Date: 20110831
  Serious: Yes (Life-Threatening, Other)
  Sender: FDA-Public Use
  Company Number: JP-ROCHE-759934

PATIENT
  Sex: Female
  Weight: 49 kg

DRUGS (7)
  1. XELODA [Suspect]
     Indication: COLON CANCER METASTATIC
     Route: 048
     Dates: start: 20101122, end: 20110126
  2. PYRIDOXAL PHOSPHATE [Concomitant]
     Dosage: FORM: POWDERED MEDICINE
     Route: 048
     Dates: start: 20101122, end: 20110210
  3. LOXONIN [Concomitant]
     Route: 048
     Dates: start: 20101112
  4. VOLTAREN [Concomitant]
     Route: 054
     Dates: start: 20101112
  5. AVASTIN [Suspect]
     Indication: COLON CANCER METASTATIC
     Route: 041
     Dates: start: 20101122, end: 20110126
  6. MAGMITT [Concomitant]
     Route: 048
     Dates: start: 20101122, end: 20110210
  7. FERROUS CITRATE [Concomitant]
     Route: 048
     Dates: start: 20101122, end: 20110210

REACTIONS (2)
  - ILEUS [None]
  - INTESTINAL PERFORATION [None]
